FAERS Safety Report 24658076 (Version 2)
Quarter: 2025Q1

REPORT INFORMATION
  Report Type: Report from Study
  Country: US (occurrence: US)
  Receive Date: 20241125
  Receipt Date: 20250114
  Transmission Date: 20250409
  Serious: Yes (Other)
  Sender: ABBVIE
  Company Number: US-ABBVIE-6010832

PATIENT
  Age: 83 Year
  Sex: Female
  Weight: 74.389 kg

DRUGS (2)
  1. ARMOUR THYROID [Suspect]
     Active Substance: THYROID, PORCINE
     Indication: Hypothyroidism
     Route: 048
     Dates: start: 2012
  2. ARMOUR THYROID [Suspect]
     Active Substance: THYROID, PORCINE
     Indication: Hypothyroidism
     Dosage: START DATE : FROM 2012 TO 2015 RANGE
     Route: 048

REACTIONS (3)
  - Sinusitis [Recovered/Resolved]
  - Nasal discomfort [Recovered/Resolved]
  - Rhinalgia [Recovered/Resolved]

NARRATIVE: CASE EVENT DATE: 20230101
